FAERS Safety Report 22521240 (Version 1)
Quarter: 2023Q2

REPORT INFORMATION
  Report Type: Spontaneous
  Country: US (occurrence: None)
  Receive Date: 20230602
  Receipt Date: 20230602
  Transmission Date: 20230721
  Serious: Yes (Hospitalization)
  Sender: FDA-Public Use
  Company Number: None

PATIENT
  Sex: Female

DRUGS (4)
  1. SANDIMMUNE [Suspect]
     Active Substance: CYCLOSPORINE
     Indication: End stage renal disease
     Dosage: FREQUENCY : EVERY 12 HOURS;?
     Route: 048
     Dates: start: 202209
  2. SANDIMMUNE [Suspect]
     Active Substance: CYCLOSPORINE
     Indication: Heart transplant
  3. SANDIMMUNE [Suspect]
     Active Substance: CYCLOSPORINE
     Indication: Anaemia
  4. RETACRIT [Suspect]
     Active Substance: EPOETIN ALFA-EPBX

REACTIONS (3)
  - Product distribution issue [None]
  - Stomatitis [None]
  - Therapy interrupted [None]
